FAERS Safety Report 5767423-X (Version None)
Quarter: 2008Q2

REPORT INFORMATION
  Report Type: 
  Country: None (occurrence: None)
  Receive Date: 20080612
  Receipt Date: 20080609
  Transmission Date: 20081010
  Serious: Yes (Hospitalization)
  Sender: FDA-Public Use
  Company Number: DE-BRISTOL-MYERS SQUIBB COMPANY-14219380

PATIENT
  Age: 71 Year
  Sex: Female

DRUGS (2)
  1. CARBOPLATIN [Suspect]
     Indication: NEOPLASM MALIGNANT
     Route: 042
     Dates: start: 20080507, end: 20080601
  2. TOPOTECAN HCL [Suspect]
     Indication: NEOPLASM MALIGNANT
     Route: 042
     Dates: start: 20080507, end: 20080601

REACTIONS (1)
  - ANAPHYLACTIC REACTION [None]
